FAERS Safety Report 17030855 (Version 1)
Quarter: 2019Q4

REPORT INFORMATION
  Report Type: Report from Study
  Country: DE (occurrence: DE)
  Receive Date: 20191114
  Receipt Date: 20191114
  Transmission Date: 20200122
  Serious: Yes (Hospitalization, Other)
  Sender: FDA-Public Use
  Company Number: PHHY2015DE095328

PATIENT
  Age: 23 Year
  Sex: Female
  Weight: 60 kg

DRUGS (5)
  1. SUMATRIPTAN. [Concomitant]
     Active Substance: SUMATRIPTAN
     Indication: MIGRAINE
     Dosage: 100 MG, UNK
     Route: 065
  2. GILENYA [Suspect]
     Active Substance: FINGOLIMOD HYDROCHLORIDE
     Indication: MULTIPLE SCLEROSIS
     Dosage: 0.5 MG, QD
     Route: 048
     Dates: start: 20131205, end: 20160204
  3. GILENYA [Suspect]
     Active Substance: FINGOLIMOD HYDROCHLORIDE
     Dosage: 0.5 MG, QW5
     Route: 048
     Dates: start: 20160205, end: 20190220
  4. ESCITALOPRAM [Concomitant]
     Active Substance: ESCITALOPRAM OXALATE
     Indication: DEPRESSION
     Dosage: 100 MG, UNK
     Route: 065
  5. GILENYA [Suspect]
     Active Substance: FINGOLIMOD HYDROCHLORIDE
     Dosage: 0.5 MG, QD
     Route: 048
     Dates: start: 20190223

REACTIONS (20)
  - Genital herpes [Recovered/Resolved]
  - Influenza [Recovered/Resolved]
  - Headache [Recovered/Resolved]
  - Nasopharyngitis [Recovered/Resolved]
  - Lymphocyte count decreased [Not Recovered/Not Resolved]
  - Blood alkaline phosphatase increased [Unknown]
  - Nasopharyngitis [Recovered/Resolved]
  - Influenza [Recovered/Resolved]
  - Herpes zoster meningoradiculitis [Unknown]
  - Pain in extremity [Recovered/Resolved]
  - Nasopharyngitis [Recovered/Resolved]
  - Meningitis [Unknown]
  - Arthropod bite [Recovered/Resolved]
  - Oral herpes [Recovered/Resolved]
  - Weight decreased [Recovered/Resolved]
  - Prescribed underdose [Unknown]
  - Headache [Unknown]
  - Leukopenia [Recovered/Resolved]
  - Gamma-glutamyltransferase increased [Recovered/Resolved]
  - Fatigue [Not Recovered/Not Resolved]

NARRATIVE: CASE EVENT DATE: 20140618
